FAERS Safety Report 4721621-2 (Version None)
Quarter: 2005Q3

REPORT INFORMATION
  Report Type: 
  Country: None (occurrence: None)
  Receive Date: 20050721
  Receipt Date: 20050111
  Transmission Date: 20060218
  Serious: No
  Sender: FDA-Public Use
  Company Number: US-BRISTOL-MYERS SQUIBB COMPANY-12821096

PATIENT
  Age: 61 Year
  Sex: Male
  Weight: 79 kg

DRUGS (7)
  1. COUMADIN [Suspect]
     Indication: ATRIAL FIBRILLATION
     Dosage: 5 MG EVERY OTHER DAY, ALTERNATING WITH 2.5 MG
     Route: 048
     Dates: start: 20031201
  2. DIGITEK [Concomitant]
  3. FLECAINIDE ACETATE [Concomitant]
  4. HYZAAR [Concomitant]
  5. TRICOR [Concomitant]
  6. VICODIN [Concomitant]
  7. XANAX [Concomitant]

REACTIONS (3)
  - ALOPECIA [None]
  - DRY SKIN [None]
  - SKIN DISCOLOURATION [None]
